FAERS Safety Report 5330361-0 (Version None)
Quarter: 2007Q2

REPORT INFORMATION
  Report Type: 
  Country: None (occurrence: None)
  Receive Date: 20070521
  Receipt Date: 20070509
  Transmission Date: 20071010
  Serious: Yes (Other)
  Sender: FDA-Public Use
  Company Number: AU-GILEAD-2007-0012019

PATIENT
  Sex: Male
  Weight: 80 kg

DRUGS (5)
  1. TRUVADA [Suspect]
     Indication: HIV INFECTION
     Route: 048
     Dates: start: 20060620
  2. EFAVIRENZ [Suspect]
     Indication: HIV INFECTION
     Route: 048
     Dates: start: 20020101
  3. SAW PALMETTO [Suspect]
  4. MINOXIDIL [Concomitant]
  5. PROSCAR [Concomitant]

REACTIONS (2)
  - BLOOD HIV RNA INCREASED [None]
  - DRUG INTERACTION [None]
